FAERS Safety Report 10162105 (Version 1)
Quarter: 2014Q2

REPORT INFORMATION
  Report Type: Spontaneous
  Country: US (occurrence: None)
  Receive Date: 20140508
  Receipt Date: 20140508
  Transmission Date: 20141212
  Serious: No
  Sender: FDA-Public Use
  Company Number: None

PATIENT
  Age: 47 Year
  Sex: Male
  Weight: 86.2 kg

DRUGS (1)
  1. INTRON A [Suspect]
     Dates: start: 20140428

REACTIONS (2)
  - Blood triglycerides increased [None]
  - Hyperlipidaemia [None]
